FAERS Safety Report 8946776 (Version 2)
Quarter: 2013Q1

REPORT INFORMATION
  Report Type: Spontaneous
  Country: JP (occurrence: JP)
  Receive Date: 20121205
  Receipt Date: 20130208
  Transmission Date: 20140127
  Serious: Yes (Other)
  Sender: FDA-Public Use
  Company Number: JP-GILEAD-2012-0065708

PATIENT
  Sex: Male

DRUGS (3)
  1. HEPSERA [Suspect]
     Indication: CHRONIC HEPATITIS B
     Dosage: 10MG PER DAY
     Route: 048
     Dates: start: 2007
  2. HEPSERA [Suspect]
     Dosage: 10 MG, QOD
     Route: 048
  3. ENTECAVIR MONOHYDRATE [Concomitant]
     Indication: CHRONIC HEPATITIS B
     Route: 065

REACTIONS (4)
  - Thoracic vertebral fracture [Unknown]
  - Back pain [Unknown]
  - Renal impairment [Not Recovered/Not Resolved]
  - Blood creatinine increased [Unknown]
